FAERS Safety Report 25233963 (Version 1)
Quarter: 2025Q2

REPORT INFORMATION
  Report Type: Report from Study
  Country: AE (occurrence: AE)
  Receive Date: 20250424
  Receipt Date: 20250424
  Transmission Date: 20250717
  Serious: Yes (Other)
  Sender: ROCHE
  Company Number: AE-ROCHE-10000259874

PATIENT
  Age: 44 Year

DRUGS (1)
  1. AVASTIN [Suspect]
     Active Substance: BEVACIZUMAB
     Indication: Product used for unknown indication
     Route: 065

REACTIONS (2)
  - Recurrent cancer [Unknown]
  - Back pain [Unknown]
